FAERS Safety Report 7006483-5 (Version None)
Quarter: 2010Q3

REPORT INFORMATION
  Report Type: 
  Country: None (occurrence: None)
  Receive Date: 20100921
  Receipt Date: 20100921
  Transmission Date: 20110219
  Serious: Yes (Other)
  Sender: FDA-Public Use
  Company Number: None

PATIENT
  Age: 33 Year
  Sex: Male
  Weight: 74.8435 kg

DRUGS (4)
  1. OXYCONTIN [Suspect]
     Indication: MULTIPLE SCLEROSIS
     Dosage: 30 MG X 2 THREE TIMES A DAY PO
     Route: 048
     Dates: start: 20090917, end: 20100920
  2. OXYCONTIN [Suspect]
     Indication: MUSCLE SPASMS
     Dosage: 30 MG X 2 THREE TIMES A DAY PO
     Route: 048
     Dates: start: 20090917, end: 20100920
  3. OXYCONTIN [Suspect]
     Indication: MYOFASCIAL PAIN SYNDROME
     Dosage: 30 MG X 2 THREE TIMES A DAY PO
     Route: 048
     Dates: start: 20090917, end: 20100920
  4. OXYCONTIN [Suspect]
     Indication: PAIN
     Dosage: 30 MG X 2 THREE TIMES A DAY PO
     Route: 048
     Dates: start: 20090917, end: 20100920

REACTIONS (5)
  - ABDOMINAL PAIN UPPER [None]
  - DYSPEPSIA [None]
  - ERUCTATION [None]
  - PRODUCT FORMULATION ISSUE [None]
  - PRODUCT QUALITY ISSUE [None]
